FAERS Safety Report 6087445-1 (Version None)
Quarter: 2009Q1

REPORT INFORMATION
  Report Type: 
  Country: None (occurrence: None)
  Receive Date: 20090219
  Receipt Date: 20090219
  Transmission Date: 20090719
  Serious: Yes (Hospitalization, Disabling)
  Sender: FDA-Public Use
  Company Number: None

PATIENT
  Sex: Female
  Weight: 69.8539 kg

DRUGS (1)
  1. CIPROFLOXACIN HCL [Suspect]
     Indication: STAPHYLOCOCCAL INFECTION
     Dosage: 500 MG. 2 PER DAY MOUTH
     Route: 048
     Dates: start: 20081010, end: 20081014

REACTIONS (1)
  - ROTATOR CUFF SYNDROME [None]
